FAERS Safety Report 5692612-2 (Version None)
Quarter: 2008Q2

REPORT INFORMATION
  Report Type: 
  Country: None (occurrence: None)
  Receive Date: 20080401
  Receipt Date: 20080320
  Transmission Date: 20081010
  Serious: Yes (Death)
  Sender: FDA-Public Use
  Company Number: 2008-01026

PATIENT
  Age: 58 Year
  Sex: Male
  Weight: 38.1 kg

DRUGS (16)
  1. VELCADE [Suspect]
     Indication: MULTIPLE MYELOMA
     Dates: start: 20060428
  2. DEXAMETHASONE TAB [Suspect]
     Indication: MULTIPLE MYELOMA
     Dates: start: 20060428
  3. THALIDOMIDE [Suspect]
     Indication: MULTIPLE MYELOMA
     Dates: start: 20060428
  4. CISPLATIN [Suspect]
     Indication: MULTIPLE MYELOMA
     Dates: start: 20060428
  5. ADRIAMYCIN PFS [Suspect]
     Indication: MULTIPLE MYELOMA
     Dates: start: 20060428
  6. CYCLOPHOSPHAMIDE [Suspect]
     Indication: MULTIPLE MYELOMA
     Dates: start: 20060428
  7. ETOPOSIDE [Suspect]
     Indication: MULTIPLE MYELOMA
     Dates: start: 20060428
  8. ACYCLOVIR [Concomitant]
  9. SERTRALINE [Concomitant]
  10. EPOGEN [Concomitant]
  11. FOLIC ACID [Concomitant]
  12. MULTIVITAMINS (ERGOCALCIFEROL, PANTHENOL, NICOTINAMIDE, RIBOFLAVIN, TH [Concomitant]
  13. AMBIEN [Concomitant]
  14. MAGNESIUM (MAGNESIUM) [Concomitant]
  15. HEPARIN LOCK-FLUSH [Concomitant]
  16. PANTOPRAZOLE SODIUM [Concomitant]

REACTIONS (1)
  - COLITIS [None]
